FAERS Safety Report 25198008 (Version 1)
Quarter: 2025Q2

REPORT INFORMATION
  Report Type: Spontaneous
  Country: US (occurrence: None)
  Receive Date: 20250414
  Receipt Date: 20250414
  Transmission Date: 20250716
  Serious: Yes (Other)
  Sender: FDA-CTU
  Company Number: None

PATIENT
  Age: 57 Year
  Sex: Male
  Weight: 92.25 kg

DRUGS (30)
  1. COSENTYX [Suspect]
     Active Substance: SECUKINUMAB
     Indication: Psoriatic arthropathy
     Route: 058
     Dates: start: 20170501, end: 20250328
  2. COSENTYX [Suspect]
     Active Substance: SECUKINUMAB
     Indication: Psoriasis
  3. TREMFYA [Concomitant]
     Active Substance: GUSELKUMAB
  4. PRISTIQ EXTENDED-RELEASE [Concomitant]
     Active Substance: DESVENLAFAXINE SUCCINATE
  5. vibrid [Concomitant]
  6. LASIX [Concomitant]
     Active Substance: FUROSEMIDE
  7. METHOTREXATE [Concomitant]
     Active Substance: METHOTREXATE
  8. atatrax [Concomitant]
  9. DESONIDE [Concomitant]
     Active Substance: DESONIDE
  10. clobetosol [Concomitant]
  11. ZOFRAN [Concomitant]
     Active Substance: ONDANSETRON HYDROCHLORIDE
  12. devenlafaxine [Concomitant]
  13. FINASTERIDE [Concomitant]
     Active Substance: FINASTERIDE
  14. ACIPHEX [Concomitant]
     Active Substance: RABEPRAZOLE SODIUM
  15. FAMOTIDINE [Concomitant]
     Active Substance: FAMOTIDINE
  16. MORPHINE SULFATE [Concomitant]
     Active Substance: MORPHINE SULFATE
  17. OXYCODONE [Concomitant]
     Active Substance: OXYCODONE
  18. XARELTO [Concomitant]
     Active Substance: RIVAROXABAN
  19. BACLOFEN [Concomitant]
     Active Substance: BACLOFEN
  20. POTASSIUM CHLORIDE [Concomitant]
     Active Substance: POTASSIUM CHLORIDE
  21. IBSRELA [Concomitant]
     Active Substance: TENAPANOR HYDROCHLORIDE
  22. REMED central sleep apnea device by respircardia [Concomitant]
  23. tryvaya [Concomitant]
  24. METHOTREXATE [Concomitant]
     Active Substance: METHOTREXATE
  25. VITAMIN D [Concomitant]
     Active Substance: VITAMIN D NOS
  26. TUMS [Concomitant]
     Active Substance: CALCIUM CARBONATE
  27. gavsicon [Concomitant]
  28. TYLENOL [Concomitant]
     Active Substance: ACETAMINOPHEN
  29. IBUPROFEN [Concomitant]
     Active Substance: IBUPROFEN
  30. HYDROCORTISONE [Concomitant]
     Active Substance: HYDROCORTISONE

REACTIONS (7)
  - Nonspecific reaction [None]
  - Weight decreased [None]
  - Irritable bowel syndrome [None]
  - Large intestine polyp [None]
  - Oesophageal polyp [None]
  - Pancreatic failure [None]
  - Gastrooesophageal reflux disease [None]

NARRATIVE: CASE EVENT DATE: 20250318
